FAERS Safety Report 4326403-1 (Version None)
Quarter: 2004Q1

REPORT INFORMATION
  Report Type: 
  Country: None (occurrence: None)
  Receive Date: 20040323
  Receipt Date: 20040309
  Transmission Date: 20041129
  Serious: Yes (Hospitalization)
  Sender: FDA-Public Use
  Company Number: 200313078

PATIENT
  Age: 58 Year
  Sex: Female

DRUGS (5)
  1. BOTOX COSMETIC [Suspect]
     Indication: SKIN WRINKLING
     Dosage: 12.5 UNITS PRN IM
     Route: 030
     Dates: start: 20020820
  2. COLLAGEN [Concomitant]
  3. ZYDERM [Concomitant]
  4. ZESTRIL [Concomitant]
  5. SYNTHROID [Concomitant]

REACTIONS (5)
  - ASTHENIA [None]
  - CEREBRAL INFARCTION [None]
  - CEREBROVASCULAR ACCIDENT [None]
  - DYSPHASIA [None]
  - PANIC ATTACK [None]
